FAERS Safety Report 6921054-4 (Version None)
Quarter: 2010Q3

REPORT INFORMATION
  Report Type: 
  Country: None (occurrence: None)
  Receive Date: 20100812
  Receipt Date: 20100802
  Transmission Date: 20110219
  Serious: Yes (Death, Other)
  Sender: FDA-Public Use
  Company Number: KR-ROCHE-719173

PATIENT

DRUGS (3)
  1. MYCOPHENOLATE MOFETIL [Suspect]
     Route: 065
  2. METHYLPREDNISOLONE [Concomitant]
     Dosage: FORM: INFUSION, ON THE DAY OF TRANSPLANTATION
     Route: 042
  3. METHYLPREDNISOLONE [Concomitant]
     Dosage: FORM: INFUSION, ON POST TRANSPLANT DAY 4
     Route: 042

REACTIONS (7)
  - CARDIOVASCULAR DISORDER [None]
  - DRUG INEFFECTIVE [None]
  - GRAFT DYSFUNCTION [None]
  - GRAFT LOSS [None]
  - HEPATITIS B [None]
  - SEPSIS [None]
  - UPPER GASTROINTESTINAL HAEMORRHAGE [None]
